FAERS Safety Report 5240604-X (Version None)
Quarter: 2007Q1

REPORT INFORMATION
  Report Type: 
  Country: None (occurrence: None)
  Receive Date: 20061208
  Receipt Date: 20050324
  Transmission Date: 20070707
  Serious: Yes (Other)
  Sender: FDA-Public Use
  Company Number: 2005UW04678

PATIENT
  Age: 84 Year
  Sex: Female
  Weight: 79.378 kg

DRUGS (3)
  1. CRESTOR [Suspect]
     Indication: BLOOD CHOLESTEROL INCREASED
     Dosage: 10 MG DAILY PO
     Route: 048
  2. PRINZIDE [Concomitant]
  3. SYNTHROID [Concomitant]

REACTIONS (2)
  - FEELING HOT [None]
  - FLUSHING [None]
